FAERS Safety Report 7304753-4 (Version None)
Quarter: 2011Q1

REPORT INFORMATION
  Report Type: 
  Country: None (occurrence: None)
  Receive Date: 20110222
  Receipt Date: 20110216
  Transmission Date: 20110831
  Serious: No
  Sender: FDA-Public Use
  Company Number: US-PFIZER INC-2011035468

PATIENT
  Sex: Female

DRUGS (4)
  1. GABAPENTIN [Suspect]
     Dosage: 100 MG, 3X/DAY
  2. GABAPENTIN [Suspect]
     Indication: PAIN
     Dosage: 300 MG, 3X/DAY
  3. DIAZEPAM [Suspect]
     Dosage: 0.5 MG, UNK
  4. GABAPENTIN [Suspect]
     Indication: CONVULSION
     Dosage: UNK, 3X/DAY

REACTIONS (5)
  - MUSCLE TWITCHING [None]
  - TREMOR [None]
  - DYSKINESIA [None]
  - HEADACHE [None]
  - DRUG LEVEL INCREASED [None]
